FAERS Safety Report 9915339 (Version 2)
Quarter: 2014Q1

REPORT INFORMATION
  Report Type: Spontaneous
  Country: US (occurrence: US)
  Receive Date: 20140221
  Receipt Date: 20140221
  Transmission Date: 20141002
  Serious: Yes (Hospitalization)
  Sender: FDA-Public Use
  Company Number: US-BEH-2013036171

PATIENT
  Age: 48 Year
  Sex: Male

DRUGS (1)
  1. PRIVIGEN [Suspect]
     Indication: TOXIC EPIDERMAL NECROLYSIS

REACTIONS (15)
  - Renal tubular necrosis [Recovering/Resolving]
  - Renal failure acute [Recovering/Resolving]
  - Haemolysis [Unknown]
  - Haemoglobin decreased [Unknown]
  - Blood creatinine increased [Recovering/Resolving]
  - Haptoglobin decreased [Unknown]
  - Blood lactate dehydrogenase increased [Unknown]
  - Coombs direct test positive [Unknown]
  - Anti-erythrocyte antibody positive [Unknown]
  - Reticulocyte count increased [Unknown]
  - Serum ferritin increased [Unknown]
  - Red blood cell spherocytes present [Unknown]
  - Red blood cell abnormality [Unknown]
  - Aspartate aminotransferase increased [Unknown]
  - Pigment nephropathy [Recovering/Resolving]
